FAERS Safety Report 7498851-2 (Version None)
Quarter: 2011Q2

REPORT INFORMATION
  Report Type: 
  Country: None (occurrence: None)
  Receive Date: 20110516
  Receipt Date: 20110309
  Transmission Date: 20111010
  Serious: Yes (Other)
  Sender: FDA-Public Use
  Company Number: CIO11008543

PATIENT
  Age: 43 Year
  Sex: Female

DRUGS (8)
  1. DRUG USED IN DIABETES [Concomitant]
  2. ORAL CONTRACEPTIVE NOS [Concomitant]
  3. H2-RECEPTOR ANTAGONISTS [Concomitant]
  4. OXYMETAZOLINE NASAL PREPARATION (OXYMETAZOLINE HYDROCHLORIDE 0.05%) NA [Suspect]
     Indication: SINUS CONGESTION
     Dosage: INTRANASAL
     Route: 045
  5. DIURETICS [Concomitant]
  6. ACETAMINOPHEN [Concomitant]
  7. THYROID THERAPY [Concomitant]
  8. ASPIRIN [Concomitant]

REACTIONS (15)
  - VISION BLURRED [None]
  - PUPILLARY REFLEX IMPAIRED [None]
  - RETINAL EXUDATES [None]
  - OPTIC ATROPHY [None]
  - SINUS CONGESTION [None]
  - OPTIC ISCHAEMIC NEUROPATHY [None]
  - PAPILLOEDEMA [None]
  - EYE HAEMORRHAGE [None]
  - HYPERTENSION [None]
  - DIABETIC MICROANGIOPATHY [None]
  - CONDITION AGGRAVATED [None]
  - VISUAL FIELD DEFECT [None]
  - OPTIC NERVE DISORDER [None]
  - VISUAL ACUITY REDUCED [None]
  - RETINAL OEDEMA [None]
